FAERS Safety Report 19498436 (Version 1)
Quarter: 2021Q3

REPORT INFORMATION
  Report Type: Report from Study
  Country: US (occurrence: US)
  Receive Date: 20210706
  Receipt Date: 20210706
  Transmission Date: 20211014
  Serious: Yes (Hospitalization)
  Sender: FDA-Public Use
  Company Number: US-BAXTER-2021BAX018320

PATIENT
  Age: 49 Year
  Sex: Female

DRUGS (13)
  1. METHOTREXATE SODIUM. [Suspect]
     Active Substance: METHOTREXATE SODIUM
     Indication: PRODUCT USED FOR UNKNOWN INDICATION
     Dosage: 50 MG/M2, CYCLIC(REGIMEN B, OVER 2HRS ON D1): MOST RECENT DOSE BEFORE EVENT
     Route: 042
  2. PEGFILGRASTIM [Suspect]
     Active Substance: PEGFILGRASTIM
     Dosage: 6 MG, CYCLIC (REGIMEN B (OR FILGRASTIM 5?10 MCG/KG) DAILY ON D4 UNTIL RECOVERY GRANULOCYTE COUNT): M
     Route: 058
  3. DEXAMETHASONE. [Suspect]
     Active Substance: DEXAMETHASONE
     Indication: PRODUCT USED FOR UNKNOWN INDICATION
     Dosage: (REGIMEN A: DAILY FOR 4 DAYS ON DAYS 1?4 AND DAYS11?14 (APPROXIMATE)): MOST RECENT DOSE BEFORE EVENT
     Route: 042
  4. MESNEX [Suspect]
     Active Substance: MESNA
     Indication: PRODUCT USED FOR UNKNOWN INDICATION
     Dosage: CYCLIC (REGIMEN A: DAILY OVER 24 HOURS FOR 3 DAYS ON DAYS 1?3): MOST RECENT DOSE BEFORE EVENT
     Route: 042
  5. RITUXIMAB. [Suspect]
     Active Substance: RITUXIMAB
     Indication: PRODUCT USED FOR UNKNOWN INDICATION
     Dosage: 375 MG/M2, CYCLIC (REGIMEN A: D2 AND DAY 8 OF CYCLES 1AND3):MOST RECENT DOSE BEFORE EVENT
     Route: 042
  6. RITUXIMAB. [Suspect]
     Active Substance: RITUXIMAB
     Dosage: 375 MG/M2, CYCLIC(REGIMEN B ON D2 AND 8 OF CYCLES 2AND4): MOST RECENT DOSE BEFORE EVENT
     Route: 042
  7. METHOTREXATE SODIUM. [Suspect]
     Active Substance: METHOTREXATE SODIUM
     Dosage: 200 MG/M2, CYCLIC(REGIMEN B,CONTINUOUS INFUSION OVER 22 HOURS ON D1): MOST RECENT DOSE BEFORE EVENT
     Route: 042
  8. CYCLOPHOSPHAMIDE FOR INJECTION, USP [Suspect]
     Active Substance: CYCLOPHOSPHAMIDE
     Indication: PRODUCT USED FOR UNKNOWN INDICATION
     Dosage: 150 MG/M2, CYCLIC (REGIMEN A: OVER 3 HRS 2XD ON D 1?3): MOST RECENT DOSE BEFORE EVENT
     Route: 042
  9. VINCRISTINE SULFATE. [Suspect]
     Active Substance: VINCRISTINE SULFATE
     Indication: PRODUCT USED FOR UNKNOWN INDICATION
     Dosage: 2 MG, CYCLIC (REGIMEN A: D1 AND DAY 8 (APPROX): MOST RECENT DOSE BEFORE EVENT
     Route: 042
  10. PEGFILGRASTIM [Suspect]
     Active Substance: PEGFILGRASTIM
     Indication: PRODUCT USED FOR UNKNOWN INDICATION
     Dosage: CYCLIC (REGIMEN A (OR FILGRASTIM 5?10 MCG/KG) DAILY ON D4 UNTIL RECOVERY GRANULOCYTE COUNT): MOST RE
     Route: 058
  11. INOTUZUMAB OZOGAMICIN [Suspect]
     Active Substance: INOTUZUMAB OZOGAMICIN
     Indication: ACUTE LYMPHOCYTIC LEUKAEMIA
     Dosage: CYCLIC(REGIMEN A: OVER 1 HR ON D2 AND 8 OF CYCLES 1 AND 3 (APPROX): MOST RECENT DOSE BEFORE EVENT
     Route: 042
     Dates: start: 20210117
  12. INOTUZUMAB OZOGAMICIN [Suspect]
     Active Substance: INOTUZUMAB OZOGAMICIN
     Dosage: 0.3 MG/M2, CYCLIC (REGIMEN: B, ON D 2 AND 8 OF CYCLES 2AND4 (APPROX)):MOST RECENT DOSE BEFORE EVENT
     Route: 042
  13. ARA?C [Suspect]
     Active Substance: CYTARABINE
     Indication: PRODUCT USED FOR UNKNOWN INDICATION
     Dosage: CYCLIC(REGIMEN B, OVER 3 HOURS TWICE A DAY X 4 DOSES ON D 2 AND 3): MOST RECENT DOSE BEFORE EVENT
     Route: 042

REACTIONS (1)
  - Ascites [Recovered/Resolved]

NARRATIVE: CASE EVENT DATE: 20210518
